FAERS Safety Report 16988359 (Version 2)
Quarter: 2024Q2

REPORT INFORMATION
  Report Type: Spontaneous
  Country: US (occurrence: US)
  Receive Date: 20191104
  Receipt Date: 20240402
  Transmission Date: 20240715
  Serious: Yes (Death, Hospitalization, Other)
  Sender: FDA-Public Use
  Company Number: US-GLAXOSMITHKLINE-US2019GSK193266

PATIENT

DRUGS (1)
  1. LAMOTRIGINE [Suspect]
     Active Substance: LAMOTRIGINE
     Indication: Depression
     Dosage: UNK

REACTIONS (26)
  - Haemophagocytic lymphohistiocytosis [Recovering/Resolving]
  - Shock [Fatal]
  - Respiratory failure [Fatal]
  - Systemic candida [Fatal]
  - Disseminated intravascular coagulation [Fatal]
  - Multiple organ dysfunction syndrome [Fatal]
  - Headache [Recovering/Resolving]
  - Fatigue [Recovering/Resolving]
  - Asthenia [Recovering/Resolving]
  - Pyrexia [Recovering/Resolving]
  - Back pain [Recovering/Resolving]
  - Meningitis [Recovering/Resolving]
  - Distributive shock [Recovering/Resolving]
  - Condition aggravated [Recovering/Resolving]
  - Acute kidney injury [Recovering/Resolving]
  - Acute respiratory failure [Recovering/Resolving]
  - Liver function test increased [Recovering/Resolving]
  - Hyperbilirubinaemia [Recovering/Resolving]
  - Pancytopenia [Recovering/Resolving]
  - General physical health deterioration [Recovering/Resolving]
  - Histiocytosis [Recovering/Resolving]
  - Blood triglycerides increased [Recovering/Resolving]
  - Serum ferritin increased [Recovering/Resolving]
  - Blood fibrinogen increased [Recovering/Resolving]
  - Interleukin-2 receptor increased [Recovering/Resolving]
  - Natural killer cell activity decreased [Recovering/Resolving]
